FAERS Safety Report 6415409-4 (Version None)
Quarter: 2009Q4

REPORT INFORMATION
  Report Type: 
  Country: None (occurrence: None)
  Receive Date: 20091027
  Receipt Date: 20091019
  Transmission Date: 20100525
  Serious: Yes (Other)
  Sender: FDA-Public Use
  Company Number: US-JNJFOC-20091005636

PATIENT
  Age: 67 Year
  Sex: Female
  Weight: 76.2 kg

DRUGS (6)
  1. TYLENOL (CAPLET) [Suspect]
     Route: 048
  2. TYLENOL (CAPLET) [Suspect]
     Route: 048
  3. TYLENOL (CAPLET) [Suspect]
     Indication: FIBROMYALGIA
     Route: 048
  4. LISINOPRIL [Concomitant]
     Indication: HYPERTENSION
  5. MULTI-VITAMINS [Concomitant]
     Indication: VITAMIN SUPPLEMENTATION
  6. TUMS [Concomitant]
     Indication: MINERAL SUPPLEMENTATION

REACTIONS (2)
  - DRUG WITHDRAWAL HEADACHE [None]
  - INTENTIONAL DRUG MISUSE [None]
